FAERS Safety Report 6143958-5 (Version None)
Quarter: 2009Q2

REPORT INFORMATION
  Report Type: 
  Country: None (occurrence: None)
  Receive Date: 20090406
  Receipt Date: 20090330
  Transmission Date: 20091009
  Serious: Yes (Hospitalization, Other)
  Sender: FDA-Public Use
  Company Number: JP-JNJFOC-20090307000

PATIENT
  Age: 73 Year
  Sex: Female

DRUGS (4)
  1. RISPERDAL [Suspect]
     Indication: DRUG USE FOR UNKNOWN INDICATION
     Dosage: 1 ML AT BEDTIME
     Route: 048
  2. LEVOTOMIN [Suspect]
     Indication: DRUG USE FOR UNKNOWN INDICATION
     Route: 065
  3. MYSLEE [Concomitant]
     Route: 065
  4. AMOBAN [Concomitant]
     Route: 065

REACTIONS (3)
  - HYPONATRAEMIA [None]
  - IMMOBILE [None]
  - MUSCULAR WEAKNESS [None]
